FAERS Safety Report 9544093 (Version 2)
Quarter: 2013Q3

REPORT INFORMATION
  Report Type: Spontaneous
  Country: BR (occurrence: BR)
  Receive Date: 20130923
  Receipt Date: 20130923
  Transmission Date: 20140515
  Serious: Yes (Hospitalization)
  Sender: FDA-Public Use
  Company Number: BR-ELI_LILLY_AND_COMPANY-BR201309007569

PATIENT
  Age: 63 Year
  Sex: Male
  Weight: 111 kg

DRUGS (13)
  1. EFFIENT [Suspect]
     Indication: ANTIPLATELET THERAPY
     Dosage: 10 MG, QD
     Route: 048
     Dates: start: 20130114, end: 20130905
  2. EFFIENT [Suspect]
     Dosage: 5 MG, QD
     Route: 048
     Dates: start: 20130906
  3. ATENOLOL [Suspect]
     Indication: PRODUCT USED FOR UNKNOWN INDICATION
     Dosage: 25 MG, BID
     Route: 048
     Dates: start: 201308
  4. LANSOPRAZOLE [Concomitant]
     Dosage: UNKNOWN
     Route: 065
  5. LOSARTAN [Concomitant]
     Dosage: UNKNOWN
     Route: 065
  6. ISOSORBIDE [Concomitant]
     Dosage: UNKNOWN
     Route: 065
  7. ALLOPURINOL [Concomitant]
     Dosage: UNKNOWN
     Route: 065
  8. BROMAZEPAM [Concomitant]
     Dosage: UNKNOWN
     Route: 065
  9. SIMVASTATIN [Concomitant]
     Dosage: UNKNOWN
     Route: 065
  10. VITAMIN E                          /00110501/ [Concomitant]
     Dosage: UNKNOWN
     Route: 065
  11. VITAMIN C                          /00008001/ [Concomitant]
     Dosage: UNKNOWN
     Route: 065
  12. SITAGLIPTIN [Concomitant]
     Dosage: UNKNOWN
     Route: 065
  13. METOPROLOL [Concomitant]
     Dosage: UNKNOWN
     Route: 065

REACTIONS (10)
  - Cardiac pacemaker insertion [Recovered/Resolved]
  - Haematoma [Not Recovered/Not Resolved]
  - Platelet count decreased [Unknown]
  - Prothrombin time prolonged [Unknown]
  - International normalised ratio increased [Unknown]
  - Activated partial thromboplastin time prolonged [Unknown]
  - Clot retraction abnormal [Unknown]
  - Creatinine renal clearance abnormal [Unknown]
  - Microalbuminuria [Unknown]
  - Urine calcium decreased [Unknown]
